FAERS Safety Report 16946240 (Version 1)
Quarter: 2019Q4

REPORT INFORMATION
  Report Type: Spontaneous
  Country: US (occurrence: US)
  Receive Date: 20191022
  Receipt Date: 20191022
  Transmission Date: 20200122
  Serious: No
  Sender: FDA-Public Use
  Company Number: US-SA-2019SA290115

PATIENT
  Sex: Male

DRUGS (1)
  1. XYZAL ALLERGY 24HR [Suspect]
     Active Substance: LEVOCETIRIZINE DIHYDROCHLORIDE
     Indication: HYPERSENSITIVITY
     Dosage: UNK UNK, UNK
     Route: 065

REACTIONS (14)
  - Abdominal pain upper [Unknown]
  - Otorrhoea [Unknown]
  - Tinnitus [Unknown]
  - Dizziness [Unknown]
  - Sleep disorder [Unknown]
  - Hypoacusis [Unknown]
  - Abnormal faeces [Unknown]
  - Aggression [Unknown]
  - Hypoaesthesia [Unknown]
  - Paraesthesia oral [Unknown]
  - Muscle spasms [Unknown]
  - Depressed mood [Unknown]
  - Agitation [Unknown]
  - Asthenia [Unknown]
